FAERS Safety Report 5084579-5 (Version None)
Quarter: 2006Q3

REPORT INFORMATION
  Report Type: 
  Country: None (occurrence: None)
  Receive Date: 20060815
  Receipt Date: 20060801
  Transmission Date: 20061208
  Serious: Yes (Hospitalization)
  Sender: FDA-Public Use
  Company Number: 06081822

PATIENT
  Age: 28 Year
  Sex: Female

DRUGS (1)
  1. ETODOLAC [Suspect]
     Indication: BACK PAIN
     Dosage: 400MG, BID, ORAL
     Route: 048
     Dates: start: 20060120, end: 20060124

REACTIONS (5)
  - HEPATIC FAILURE [None]
  - JAUNDICE [None]
  - NAUSEA [None]
  - PORTAL VEIN THROMBOSIS [None]
  - VOMITING [None]
